FAERS Safety Report 8140629-0 (Version None)
Quarter: 2012Q1

REPORT INFORMATION
  Report Type: 
  Country: None (occurrence: None)
  Receive Date: 20120214
  Receipt Date: 20120214
  Transmission Date: 20120608
  Serious: No
  Sender: FDA-Public Use
  Company Number: None

PATIENT
  Sex: Female
  Weight: 82.5547 kg

DRUGS (1)
  1. LOSARTAN POTASSIUM [Suspect]
     Indication: HYPERTENSION
     Dosage: 1 TAB DAILY BY MOUTH
     Route: 048
     Dates: start: 20120101, end: 20120201

REACTIONS (4)
  - PRODUCT SUBSTITUTION ISSUE [None]
  - BLOOD PRESSURE INADEQUATELY CONTROLLED [None]
  - MALAISE [None]
  - HEADACHE [None]
